FAERS Safety Report 24431418 (Version 2)
Quarter: 2024Q4

REPORT INFORMATION
  Report Type: Report from Study
  Country: IN (occurrence: IN)
  Receive Date: 20241014
  Receipt Date: 20241019
  Transmission Date: 20250115
  Serious: Yes (Hospitalization)
  Sender: ROCHE
  Company Number: IN-ROCHE-10000098428

PATIENT
  Age: 5 Year
  Sex: Male

DRUGS (1)
  1. ACTEMRA [Suspect]
     Active Substance: TOCILIZUMAB
     Indication: Still^s disease
     Dosage: FREQUENCY: 14 INTERVAL
     Route: 042
     Dates: start: 20231010

REACTIONS (1)
  - Ill-defined disorder [Not Recovered/Not Resolved]
